FAERS Safety Report 4734818-2 (Version None)
Quarter: 2005Q3

REPORT INFORMATION
  Report Type: 
  Country: None (occurrence: None)
  Receive Date: 20050729
  Receipt Date: 20050718
  Transmission Date: 20060218
  Serious: Yes (Death, Other)
  Sender: FDA-Public Use
  Company Number: HQWYE591026AUG04

PATIENT
  Age: 53 Year
  Sex: Female
  Weight: 49.94 kg

DRUGS (4)
  1. PREMPRO [Suspect]
     Dosage: ORAL
     Route: 048
     Dates: start: 19970901, end: 19980201
  2. ESTRADIOL [Suspect]
     Dosage: ORAL
     Route: 048
     Dates: start: 19970201, end: 19970701
  3. MEDROXYPROGESTERONE ACETATE [Suspect]
     Dosage: ORAL
     Route: 048
     Dates: start: 19970201, end: 19970701
  4. PREMARIN [Suspect]
     Dates: start: 19940801, end: 19970101

REACTIONS (28)
  - BREAST CANCER FEMALE [None]
  - BREAST HYPERPLASIA [None]
  - CARCINOEMBRYONIC ANTIGEN INCREASED [None]
  - CARDIO-RESPIRATORY ARREST [None]
  - CHRONIC OBSTRUCTIVE PULMONARY DISEASE [None]
  - CYST RUPTURE [None]
  - CYTOMEGALOVIRUS ANTIBODY POSITIVE [None]
  - DRUG INTOLERANCE [None]
  - DYSPLASIA [None]
  - FIBROADENOMA [None]
  - FIBROCYSTIC BREAST DISEASE [None]
  - GASTRITIS [None]
  - INFECTION [None]
  - MALIGNANT NEOPLASM PROGRESSION [None]
  - METAPLASIA [None]
  - METASTASES TO BONE [None]
  - METASTASES TO LIVER [None]
  - METASTASES TO LYMPH NODES [None]
  - METASTASES TO STOMACH [None]
  - NEUTROPENIA [None]
  - OESTROGEN RECEPTOR ASSAY POSITIVE [None]
  - PNEUMONIA [None]
  - PROGESTERONE RECEPTOR ASSAY POSITIVE [None]
  - RESPIRATORY DISTRESS [None]
  - SCOLIOSIS [None]
  - SEPSIS [None]
  - SPINAL OSTEOARTHRITIS [None]
  - SPLEEN DISORDER [None]
